FAERS Safety Report 14258241 (Version 2)
Quarter: 2018Q4

REPORT INFORMATION
  Report Type: Report from Study
  Country: LB (occurrence: LB)
  Receive Date: 20171207
  Receipt Date: 20181224
  Transmission Date: 20190204
  Serious: Yes (Hospitalization, Other)
  Sender: FDA-Public Use
  Company Number: LB-ROCHE-2033518

PATIENT

DRUGS (2)
  1. RITUXIMAB. [Suspect]
     Active Substance: RITUXIMAB
     Dosage: MAINTAINED ON SINGLE INFUSIONS OF 1000MG EVERY 6-12 MONTHS
     Route: 042
  2. RITUXIMAB. [Suspect]
     Active Substance: RITUXIMAB
     Indication: MULTIPLE SCLEROSIS
     Dosage: LOADING DOSE (2000MG INTRAVENOUS (IV) RITUXIMAB SUBDIVIDED INTO 2 INFUSIONS GIVEN AT 2-WEEK INTERVAL
     Route: 042

REACTIONS (28)
  - Flatulence [Unknown]
  - Arthralgia [Unknown]
  - Urinary tract infection [Unknown]
  - Fatigue [Unknown]
  - Hip fracture [Unknown]
  - Seborrhoeic dermatitis [Unknown]
  - Meningioma benign [Unknown]
  - Alopecia [Unknown]
  - Anaemia [Unknown]
  - Nausea [Unknown]
  - Abdominal pain [Unknown]
  - Weight increased [Unknown]
  - Neoplasm [Unknown]
  - Infusion related reaction [Unknown]
  - Abdominal distension [Unknown]
  - Paraesthesia [Unknown]
  - Eosinophilia [Unknown]
  - Off label use [Unknown]
  - Lower respiratory tract infection [Unknown]
  - Pityriasis rosea [Unknown]
  - Lymphopenia [Unknown]
  - Upper respiratory tract infection [Unknown]
  - Sexual dysfunction [Unknown]
  - Micturition urgency [Unknown]
  - Influenza [Unknown]
  - Headache [Unknown]
  - Decreased appetite [Unknown]
  - Intentional product use issue [Unknown]
